FAERS Safety Report 21242283 (Version 2)
Quarter: 2023Q1

REPORT INFORMATION
  Report Type: Spontaneous
  Country: GR (occurrence: GR)
  Receive Date: 20220823
  Receipt Date: 20230308
  Transmission Date: 20230418
  Serious: Yes (Hospitalization, Other)
  Sender: FDA-Public Use
  Company Number: None

PATIENT
  Sex: Female
  Weight: 60 kg

DRUGS (44)
  1. DOXORUBICIN [Suspect]
     Active Substance: DOXORUBICIN
     Indication: Non-Hodgkin^s lymphoma
     Dosage: 75 MG, 8 CYCLES
     Route: 065
     Dates: start: 20190513, end: 20191009
  2. DOXORUBICIN [Suspect]
     Active Substance: DOXORUBICIN
     Indication: Diffuse large B-cell lymphoma
     Dosage: 8 CYCLES, AS A PART OF CHOP REGIMEN
     Route: 065
     Dates: start: 20190513, end: 20191013
  3. DOXORUBICIN [Suspect]
     Active Substance: DOXORUBICIN
     Dosage: UNK
     Route: 065
  4. DOXORUBICIN [Suspect]
     Active Substance: DOXORUBICIN
     Dosage: 75 MG, 8 CYCLE
     Route: 065
     Dates: start: 20190513, end: 20200124
  5. CYCLOPHOSPHAMIDE [Suspect]
     Active Substance: CYCLOPHOSPHAMIDE
     Indication: Diffuse large B-cell lymphoma
     Dosage: 8 CYCLES, AS A PART OF CHOP REGIMEN
     Route: 065
     Dates: start: 20190513, end: 20191013
  6. CYTARABINE [Suspect]
     Active Substance: CYTARABINE
     Indication: Non-Hodgkin^s lymphoma
     Dosage: 3 G, 2 CYCLES
     Route: 065
     Dates: start: 20191123, end: 20200113
  7. CYTARABINE [Suspect]
     Active Substance: CYTARABINE
     Route: 065
  8. LOSEC [Suspect]
     Active Substance: OMEPRAZOLE
     Indication: Non-Hodgkin^s lymphoma
     Dosage: 1 CYCLES TWICE
     Route: 065
     Dates: start: 20191223, end: 20200113
  9. ALDACTONE [Suspect]
     Active Substance: SPIRONOLACTONE
     Indication: Non-Hodgkin^s lymphoma
     Dosage: 100 MG, 1 CYCLE
     Route: 065
     Dates: start: 20200105, end: 20200112
  10. ALDACTONE [Suspect]
     Active Substance: SPIRONOLACTONE
     Dosage: UNK
     Route: 065
  11. CISPLATIN\CYTARABINE\ETOPOSIDE\METHYLPREDNISOLONE (ESHAP) [Suspect]
     Active Substance: CISPLATIN\CYTARABINE\ETOPOSIDE\METHYLPREDNISOLONE (ESHAP)
     Indication: Diffuse large B-cell lymphoma
     Dosage: 2 CYCLES
     Route: 065
     Dates: start: 20191113, end: 20191223
  12. ERYTHROPOIETIN [Suspect]
     Active Substance: ERYTHROPOIETIN
     Indication: Anaemia
     Dosage: 1 CYCLE
     Route: 065
     Dates: start: 20190523, end: 20200124
  13. NORVASC [Suspect]
     Active Substance: AMLODIPINE BESYLATE
     Indication: Hypertension
     Dosage: 5 MG, 1 CYCLE
     Route: 065
     Dates: start: 20190515, end: 20190516
  14. NORVASC [Suspect]
     Active Substance: AMLODIPINE BESYLATE
     Dosage: UNK
     Route: 065
  15. LASIX [Suspect]
     Active Substance: FUROSEMIDE
     Indication: Non-Hodgkin^s lymphoma
     Dosage: 1 CYCLE
     Route: 065
     Dates: start: 20200110, end: 20200113
  16. VEPESID [Suspect]
     Active Substance: ETOPOSIDE
     Indication: Non-Hodgkin^s lymphoma
     Dosage: 90 MG, 2 CYCLE
     Route: 065
     Dates: start: 20191119, end: 20200113
  17. VEPESID [Suspect]
     Active Substance: ETOPOSIDE
     Dosage: UNK
     Route: 065
  18. CISPLATIN [Suspect]
     Active Substance: CISPLATIN
     Indication: Non-Hodgkin^s lymphoma
     Dosage: 38 MG, 2 CYCLES
     Route: 065
     Dates: start: 20191119, end: 20200113
  19. CISPLATIN [Suspect]
     Active Substance: CISPLATIN
     Route: 065
  20. VALTREX [Suspect]
     Active Substance: VALACYCLOVIR HYDROCHLORIDE
     Indication: Non-Hodgkin^s lymphoma
     Dosage: 500 MG
     Route: 065
     Dates: start: 20190513, end: 20190516
  21. VALTREX [Suspect]
     Active Substance: VALACYCLOVIR HYDROCHLORIDE
     Dosage: 500 G, 1 CYCLE
     Route: 065
     Dates: start: 20200108, end: 20200113
  22. VALTREX [Suspect]
     Active Substance: VALACYCLOVIR HYDROCHLORIDE
     Dosage: UNK
     Route: 065
  23. VALTREX [Suspect]
     Active Substance: VALACYCLOVIR HYDROCHLORIDE
     Dosage: UNK
     Route: 065
  24. MABTHERA [Suspect]
     Active Substance: RITUXIMAB
     Indication: Non-Hodgkin^s lymphoma
     Dosage: 650 MG, 1 CYCLE
     Route: 065
     Dates: start: 20191222, end: 20200113
  25. MABTHERA [Suspect]
     Active Substance: RITUXIMAB
     Dosage: SOLUTION FOR INJECTION, 1400 MG, 1 CYCLE
     Route: 065
     Dates: start: 20191113, end: 20191210
  26. MABTHERA [Suspect]
     Active Substance: RITUXIMAB
     Dosage: SOLUTION FOR INJECTION, 1400 MG, 6 CYCLES
     Route: 065
     Dates: start: 20190625, end: 20191009
  27. ALBUMIN HUMAN [Suspect]
     Active Substance: ALBUMIN HUMAN
     Indication: Non-Hodgkin^s lymphoma
     Dosage: 1 CYLCE 50MG X2
     Route: 065
     Dates: start: 20200110, end: 20200113
  28. CUBICIN [Suspect]
     Active Substance: DAPTOMYCIN
     Indication: Non-Hodgkin^s lymphoma
     Dosage: 350 MG, 1 CYCLE
     Route: 065
     Dates: start: 20200102, end: 20200113
  29. MEROPENEM [Suspect]
     Active Substance: MEROPENEM
     Indication: Non-Hodgkin^s lymphoma
     Dosage: 2 G, 1 CYCLE 2GX3
     Route: 065
     Dates: start: 20200103, end: 20200113
  30. CHLORPHENIRAMINE MALEATE [Suspect]
     Active Substance: CHLORPHENIRAMINE MALEATE
     Indication: Non-Hodgkin^s lymphoma
     Dosage: 1 CYCLE
     Route: 065
     Dates: start: 20200110, end: 20200112
  31. CHLORPHENIRAMINE MALEATE [Suspect]
     Active Substance: CHLORPHENIRAMINE MALEATE
     Dosage: UNK
     Route: 065
  32. FILGRASTIM [Suspect]
     Active Substance: FILGRASTIM
     Indication: Leukopenia
     Route: 065
     Dates: start: 20190523, end: 20200117
  33. HYALURONIDASE (HUMAN RECOMBINANT)\RITUXIMAB [Suspect]
     Active Substance: HYALURONIDASE (HUMAN RECOMBINANT)\RITUXIMAB
     Indication: Diffuse large B-cell lymphoma
     Dosage: 3 CYCLES
     Route: 065
     Dates: start: 20190513, end: 20190625
  34. RITUXIMAB [Suspect]
     Active Substance: RITUXIMAB
     Indication: Diffuse large B-cell lymphoma
     Dosage: 8 CYCLES
     Route: 065
     Dates: start: 20190513, end: 20191013
  35. RITUXIMAB [Suspect]
     Active Substance: RITUXIMAB
     Dosage: 2 CYCLES
     Route: 065
     Dates: start: 20191113, end: 20191223
  36. CANCIDAS [Suspect]
     Active Substance: CASPOFUNGIN ACETATE
     Indication: Non-Hodgkin^s lymphoma
     Dosage: 50 MG
     Route: 065
     Dates: start: 20200105, end: 20200113
  37. PREDNISONE [Suspect]
     Active Substance: PREDNISONE
     Indication: Diffuse large B-cell lymphoma
     Dosage: 8 CYCLES, AS A PART OF CHOP REGIMEN
     Route: 065
     Dates: start: 20190513, end: 20191013
  38. VINCRISTINE SULFATE [Suspect]
     Active Substance: VINCRISTINE SULFATE
     Indication: Diffuse large B-cell lymphoma
     Dosage: 8 CYCLES, AS A PART OF CHOP REGIMEN
     Route: 065
     Dates: start: 20190513, end: 20191013
  39. CHLORPHENIRAMINE MALEATE [Suspect]
     Active Substance: CHLORPHENIRAMINE MALEATE
     Indication: Non-Hodgkin^s lymphoma
     Dosage: UNK, 1 CYCLE
     Route: 065
     Dates: start: 20200110, end: 20200110
  40. VINCRISTINE SULFATE [Suspect]
     Active Substance: VINCRISTINE SULFATE
     Indication: Diffuse large B-cell lymphoma
     Route: 065
  41. VINCRISTINE SULFATE [Suspect]
     Active Substance: VINCRISTINE SULFATE
     Indication: Non-Hodgkin^s lymphoma
  42. VINCRISTINE SULFATE [Suspect]
     Active Substance: VINCRISTINE SULFATE
     Indication: Hypertension
  43. VINCRISTINE SULFATE [Suspect]
     Active Substance: VINCRISTINE SULFATE
     Indication: Anaemia
  44. VINCRISTINE SULFATE [Suspect]
     Active Substance: VINCRISTINE SULFATE
     Indication: Leukopenia

REACTIONS (3)
  - Neoplasm progression [Unknown]
  - Disease progression [Unknown]
  - Diffuse large B-cell lymphoma refractory [Unknown]
